FAERS Safety Report 26129246 (Version 2)
Quarter: 2025Q4

REPORT INFORMATION
  Report Type: Spontaneous
  Country: GB (occurrence: GB)
  Receive Date: 20251208
  Receipt Date: 20251218
  Transmission Date: 20260118
  Serious: Yes (Other)
  Sender: AUROBINDO
  Company Number: GB-MLMSERVICE-20251119-PI713919-00117-1

PATIENT
  Age: 13 Year
  Sex: Male

DRUGS (10)
  1. PREDNISOLONE [Suspect]
     Active Substance: PREDNISOLONE
     Indication: Uveitis
     Dosage: 40 MILLIGRAM, DAILY
     Route: 061
  2. PREDNISOLONE [Suspect]
     Active Substance: PREDNISOLONE
     Indication: Retinal vasculitis
     Dosage: 15 MILLIGRAM, DAILY
     Route: 061
  3. PREDNISOLONE [Suspect]
     Active Substance: PREDNISOLONE
     Dosage: 5 MILLIGRAM, DAILY
     Route: 061
  4. PREDNISOLONE [Suspect]
     Active Substance: PREDNISOLONE
     Dosage: 1 MILLIGRAM, DAILY
     Route: 061
  5. DEXAMETHASONE [Suspect]
     Active Substance: DEXAMETHASONE
     Indication: Uveitis
     Dosage: UNK
     Route: 065
  6. DEXAMETHASONE [Suspect]
     Active Substance: DEXAMETHASONE
     Indication: Retinal vasculitis
  7. KETOROLAC [Concomitant]
     Active Substance: KETOROLAC TROMETHAMINE
     Indication: Product used for unknown indication
     Dosage: UNK
     Route: 065
  8. SIROLIMUS [Concomitant]
     Active Substance: SIROLIMUS
     Indication: Cytopenia
     Dosage: 2.5 MILLIGRAM, DAILY
     Route: 061
  9. ABATACEPT [Concomitant]
     Active Substance: ABATACEPT
     Indication: Cytopenia
     Dosage: LOADING DOSE OF 500 MG 2 WEEKLY FOR 4 DOSES, FOLLOWED BY A MAINTENANCE DOSE OF 500 MG 5 WEEKLY, UNTIL PRESENT
  10. ABATACEPT [Concomitant]
     Active Substance: ABATACEPT
     Indication: Cytopenia
     Dosage: TWICE DAILY IN BOTH EYES
     Route: 065

REACTIONS (1)
  - Ocular hypertension [Unknown]
